FAERS Safety Report 21651624 (Version 1)
Quarter: 2022Q4

REPORT INFORMATION
  Report Type: Spontaneous
  Country: US (occurrence: None)
  Receive Date: 20221123
  Receipt Date: 20221123
  Transmission Date: 20230112
  Serious: Yes (Death)
  Sender: FDA-Public Use
  Company Number: None

PATIENT
  Sex: Female

DRUGS (4)
  1. LENALIDOMIDE [Suspect]
     Active Substance: LENALIDOMIDE
     Indication: Plasma cell myeloma
     Dosage: TAKE 1 CAPSULE BY MOUTH DAILY 21 DAYS ON AND 7 DAYS OFF
     Route: 048
     Dates: start: 20220928, end: 20221120
  2. CYCLOPHOSPH [Concomitant]
  3. RITUXAN [Concomitant]
     Active Substance: RITUXIMAB
  4. VINCRISTINE [Concomitant]
     Active Substance: VINCRISTINE

REACTIONS (1)
  - Death [None]
